FAERS Safety Report 10478447 (Version 6)
Quarter: 2019Q2

REPORT INFORMATION
  Report Type: Spontaneous
  Country: US (occurrence: US)
  Receive Date: 20140926
  Receipt Date: 20190426
  Transmission Date: 20190711
  Serious: Yes (Other)
  Sender: FDA-Public Use
  Company Number: US-PFIZER INC-2014263119

PATIENT
  Age: 55 Year
  Sex: Female
  Weight: 45 kg

DRUGS (4)
  1. LYRICA [Suspect]
     Active Substance: PREGABALIN
     Indication: SEIZURE
     Dosage: 100 MG, 1X/DAY
     Route: 048
     Dates: start: 2007
  2. LYRICA [Suspect]
     Active Substance: PREGABALIN
     Indication: EPILEPSY
  3. LYRICA [Suspect]
     Active Substance: PREGABALIN
     Indication: SPINAL DISORDER
     Dosage: 100 MG, DAILY
     Route: 048
  4. LOSARTAN. [Concomitant]
     Active Substance: LOSARTAN
     Indication: HYPERTENSION
     Dosage: 50 MG, UNK

REACTIONS (5)
  - Product storage error [Unknown]
  - Stress [Unknown]
  - Malaise [Unknown]
  - Blood test abnormal [Unknown]
  - Cardiac arrest [Unknown]

NARRATIVE: CASE EVENT DATE: 2014
